FAERS Safety Report 8991002 (Version 1)
Quarter: 2012Q4

REPORT INFORMATION
  Report Type: Spontaneous
  Country: US (occurrence: None)
  Receive Date: 20121227
  Receipt Date: 20121227
  Transmission Date: 20130627
  Serious: Yes (Other)
  Sender: FDA-Public Use
  Company Number: None

PATIENT
  Age: 36 Year
  Sex: Female
  Weight: 54.43 kg

DRUGS (2)
  1. ESCITALOPRAM 20MG [Suspect]
     Indication: ANXIETY
     Route: 002
     Dates: start: 20120926, end: 20121221
  2. ESCITALOPRAM 20MG [Suspect]
     Indication: DEPRESSION
     Route: 002
     Dates: start: 20120926, end: 20121221

REACTIONS (3)
  - Product substitution issue [None]
  - Anxiety [None]
  - Drug ineffective [None]
